FAERS Safety Report 21322015 (Version 1)
Quarter: 2022Q3

REPORT INFORMATION
  Report Type: Spontaneous
  Country: GB (occurrence: GB)
  Receive Date: 20220912
  Receipt Date: 20220912
  Transmission Date: 20221027
  Serious: Yes (Other)
  Sender: FDA-Public Use
  Company Number: None

PATIENT
  Sex: Male

DRUGS (12)
  1. GABAPENTIN [Interacting]
     Active Substance: GABAPENTIN
     Indication: Product used for unknown indication
     Dosage: 4 - 3 TIMES A DAY = 3,600MG, OVER 10 YEARS, UNIT DOSE 300MG
     Route: 065
  2. CLONAZEPAM [Interacting]
     Active Substance: CLONAZEPAM
     Indication: Product used for unknown indication
     Dosage: 2 MILLIGRAM DAILY; 1 - 4 TIMES A DAY, OVER 10 YEARS, UNIT DOSE: 0.5MG
     Route: 065
  3. BACLOFEN [Interacting]
     Active Substance: BACLOFEN
     Indication: Product used for unknown indication
     Dosage: 40 MILLIGRAM DAILY; 1 - 4 TIMES A DAY = 40MG, OVER 10 YEARS, UNIT DOSE: 10MG
     Route: 065
  4. TRAMADOL [Interacting]
     Active Substance: TRAMADOL
     Indication: Product used for unknown indication
     Dosage: 200 MILLIGRAM DAILY; 1 - 4 TIMES A DAY = 200MG, OVER 10 YEARS, UNIT DOSE:50MG
     Route: 065
  5. ISOSORBIDE MONONITRATE [Interacting]
     Active Substance: ISOSORBIDE MONONITRATE
     Indication: Product used for unknown indication
     Dosage: 80 MILLIGRAM DAILY; 80 MG, OVER 10 YEARS, UNIT DOSE: 40MG, FREQUENCY: TWICE A DAY
     Route: 065
  6. SERTRALINE [Interacting]
     Active Substance: SERTRALINE HYDROCHLORIDE
     Indication: Product used for unknown indication
     Dosage: 200 MILLIGRAM DAILY; 200MG, OVER 10 YEARS, UNIT DOSE: 100MG, FREQUENCY: TWICE A DAY
     Route: 065
  7. ATORVASTATIN [Interacting]
     Active Substance: ATORVASTATIN
     Indication: Product used for unknown indication
     Dosage: 20 MILLIGRAM DAILY; 1 A DAY OVER 10 YEARS, UNIT DOSE: 20MG, FREQUENCY: ONCE A DAY
     Route: 065
  8. AMLODIPINE [Interacting]
     Active Substance: AMLODIPINE BESYLATE
     Indication: Product used for unknown indication
     Dosage: 10 MILLIGRAM DAILY; 1 A DAY OVER 10 YEARS, UNIT DOSE: 10MG, FREQUENCY: ONCE A DAY
     Route: 065
  9. ALLOPURINOL [Interacting]
     Active Substance: ALLOPURINOL
     Indication: Product used for unknown indication
     Dosage: 300 MILLIGRAM DAILY; 1 A DAY OVER 10 YEARS, UNIT DOSE: 300MG, FREQUENCY: ONCE A DAY
     Route: 065
  10. LISINOPRIL [Interacting]
     Active Substance: LISINOPRIL
     Indication: Product used for unknown indication
     Dosage: 20 MILLIGRAM DAILY; 1 A DAY OVER 10 YEARS, UNIT DOSE: 20MG, FREQUENCY: ONCE A DAY
     Route: 065
  11. ASPIRIN [Interacting]
     Active Substance: ASPIRIN
     Indication: Product used for unknown indication
     Dosage: 75 MILLIGRAM DAILY; 1 A DAY OVER 10 YEARS. TOTAL PER DAY 4,625 MG A DAY/10 YEAR, UNIT DOSE: 75 MG, F
     Route: 065
  12. ATENOLOL [Interacting]
     Active Substance: ATENOLOL
     Indication: Product used for unknown indication
     Dosage: 100 MILLIGRAM DAILY; 1 A DAY OVER 10 YEARS, UNIT DOSE: 100MG, FREQUENCY: ONCE A DAY
     Route: 065

REACTIONS (3)
  - Confusion postoperative [Unknown]
  - Agitation postoperative [Unknown]
  - Drug interaction [Unknown]
